FAERS Safety Report 10990994 (Version 1)
Quarter: 2015Q2

REPORT INFORMATION
  Report Type: Spontaneous
  Country: JP (occurrence: JP)
  Receive Date: 20150406
  Receipt Date: 20150406
  Transmission Date: 20150821
  Serious: Yes (Death, Hospitalization)
  Sender: FDA-Public Use
  Company Number: JP-BRISTOL-MYERS SQUIBB COMPANY-BMS-2015-020246

PATIENT
  Age: 64 Year
  Sex: Male

DRUGS (2)
  1. ERBITUX [Suspect]
     Active Substance: CETUXIMAB
     Indication: TONGUE NEOPLASM MALIGNANT STAGE UNSPECIFIED
     Dosage: 400 MG/M2, UNK
     Route: 041
     Dates: start: 20150126, end: 20150126
  2. ERBITUX [Suspect]
     Active Substance: CETUXIMAB
     Dosage: 250 MG/M2, UNK
     Route: 041
     Dates: end: 20150209

REACTIONS (2)
  - Sepsis [Fatal]
  - Interstitial lung disease [Unknown]

NARRATIVE: CASE EVENT DATE: 20150212
